FAERS Safety Report 5729295-9 (Version None)
Quarter: 2008Q2

REPORT INFORMATION
  Report Type: 
  Country: None (occurrence: None)
  Receive Date: 20080506
  Receipt Date: 20080429
  Transmission Date: 20081010
  Serious: Yes (Death)
  Sender: FDA-Public Use
  Company Number: US-AVENTIS-200813884GDDC

PATIENT
  Age: 75 Year
  Sex: Female

DRUGS (4)
  1. TELITHROMYCIN [Suspect]
     Dosage: DOSE: UNK
  2. TACROLIMUS [Suspect]
     Indication: RENAL TRANSPLANT
     Dosage: DOSE: UNK
  3. MYCOPHENOLIC ACID [Concomitant]
     Dosage: DOSE: UNK
  4. PREDNISONE [Concomitant]
     Dosage: DOSE: UNK

REACTIONS (2)
  - DRUG INTERACTION [None]
  - RENAL FAILURE ACUTE [None]
